FAERS Safety Report 18950095 (Version 2)
Quarter: 2021Q2

REPORT INFORMATION
  Report Type: Other
  Country: US (occurrence: US)
  Receive Date: 20210228
  Receipt Date: 20210414
  Transmission Date: 20210717
  Serious: No
  Sender: FDA-Public Use
  Company Number: US-NEUROCRINE BIOSCIENCES INC.-2021NBI00794

PATIENT

DRUGS (2)
  1. INGREZZA [Suspect]
     Active Substance: VALBENAZINE
     Indication: TARDIVE DYSKINESIA
     Dosage: 80 MILLIGRAM QD
     Route: 048
     Dates: start: 20210119
  2. INGREZZA [Suspect]
     Active Substance: VALBENAZINE
     Dosage: 80 MILLIGRAM, QOD EVERY OTHER DAY
     Route: 048
     Dates: end: 2021

REACTIONS (2)
  - Fatigue [Unknown]
  - Somnolence [Unknown]

NARRATIVE: CASE EVENT DATE: 2021
